FAERS Safety Report 8561404-9 (Version None)
Quarter: 2012Q3

REPORT INFORMATION
  Report Type: 
  Country: None (occurrence: None)
  Receive Date: 20120802
  Receipt Date: 20120727
  Transmission Date: 20120928
  Serious: Yes (Hospitalization)
  Sender: FDA-Public Use
  Company Number: CA-GLAXOSMITHKLINE-A0987275A

PATIENT
  Sex: Male

DRUGS (1)
  1. MALARONE [Suspect]
     Indication: PRODUCT USED FOR UNKNOWN INDICATION
     Route: 065
     Dates: start: 20120102

REACTIONS (11)
  - DECREASED APPETITE [None]
  - ARRHYTHMIA [None]
  - VOMITING [None]
  - CARDIAC DISORDER [None]
  - ASTHENIA [None]
  - DYSPNOEA [None]
  - COUGH [None]
  - CHEST DISCOMFORT [None]
  - STENT PLACEMENT [None]
  - DIARRHOEA [None]
  - WEIGHT DECREASED [None]
